FAERS Safety Report 7165687-1 (Version None)
Quarter: 2010Q4

REPORT INFORMATION
  Report Type: 
  Country: None (occurrence: None)
  Receive Date: 20101215
  Receipt Date: 20100104
  Transmission Date: 20110411
  Serious: No
  Sender: FDA-Public Use
  Company Number: US-AMGEN-KDL383488

PATIENT

DRUGS (14)
  1. ENBREL [Suspect]
     Indication: PRODUCT USED FOR UNKNOWN INDICATION
     Dosage: 50 MG, QWK
     Route: 058
     Dates: start: 20091202
  2. EFFEXOR [Concomitant]
     Dosage: 25 MG, UNK
  3. METHOTREXATE [Concomitant]
     Dosage: 2.5 MG, UNK
  4. CLONAZEPAM [Concomitant]
     Dosage: 1 MG, UNK
  5. LORAZEPAM [Concomitant]
     Dosage: .5 MG, UNK
  6. OMEPRAZOLE [Concomitant]
     Dosage: 10 MG, UNK
  7. STOOL SOFTENER [Concomitant]
     Dosage: 100 MG, UNK
  8. FOLIC ACID [Concomitant]
     Dosage: 1 MG, UNK
  9. LAMOTRIGINE [Concomitant]
     Dosage: 25 MG, UNK
  10. PSEUDOEPHEDRINE HYDROCHLORIDE [Concomitant]
     Dosage: 10 MG, UNK
  11. DIPHENHYDRAMINE HYDROCHLORIDE [Concomitant]
     Dosage: 25 MG, UNK
  12. LOVAZA [Concomitant]
     Dosage: 340 MG, UNK
  13. TYLENOL PM [Concomitant]
     Dosage: UNK UNK, UNK
  14. UNSPECIFIED MEDICATION [Concomitant]
     Dosage: UNK UNK, UNK

REACTIONS (1)
  - CONTUSION [None]
